FAERS Safety Report 5966395-2 (Version None)
Quarter: 2008Q4

REPORT INFORMATION
  Report Type: 
  Country: None (occurrence: None)
  Receive Date: 20081125
  Receipt Date: 20081002
  Transmission Date: 20090506
  Serious: No
  Sender: FDA-Public Use
  Company Number: US-AMGEN-KDL310272

PATIENT
  Sex: Female
  Weight: 81.7 kg

DRUGS (6)
  1. ENBREL [Suspect]
     Indication: OSTEOARTHRITIS
     Route: 058
     Dates: start: 20010301
  2. METHOTREXATE [Concomitant]
     Route: 048
  3. MOBIC [Concomitant]
  4. ULTRAM [Concomitant]
  5. PROZAC [Concomitant]
  6. KLONOPIN [Concomitant]

REACTIONS (5)
  - ARTHRALGIA [None]
  - CELLULITIS [None]
  - LYMPHOEDEMA [None]
  - RASH PAPULAR [None]
  - URTICARIA [None]
